FAERS Safety Report 25287488 (Version 1)
Quarter: 2025Q2

REPORT INFORMATION
  Report Type: Spontaneous
  Country: CN (occurrence: CN)
  Receive Date: 20250509
  Receipt Date: 20250509
  Transmission Date: 20250716
  Serious: Yes (Hospitalization, Disabling, Other)
  Sender: SANOFI AVENTIS
  Company Number: CN-SA-2025SA131955

PATIENT
  Age: 84 Year
  Sex: Male
  Weight: 50 kg

DRUGS (4)
  1. ZOLPIDEM TARTRATE [Suspect]
     Active Substance: ZOLPIDEM TARTRATE
     Indication: Dizziness
     Dosage: 5 MG, QD
     Route: 048
     Dates: start: 20250423, end: 20250424
  2. ROSUVASTATIN CALCIUM [Suspect]
     Active Substance: ROSUVASTATIN CALCIUM
     Indication: Dizziness
     Dosage: 10 MG, QD
     Route: 048
     Dates: start: 20250423, end: 20250424
  3. CEFTRIAXONE SODIUM [Suspect]
     Active Substance: CEFTRIAXONE SODIUM
     Indication: Pneumonia
     Dosage: 2 G, QD
     Route: 041
     Dates: start: 20250423, end: 20250424
  4. TEPRENONE [Suspect]
     Active Substance: TEPRENONE
     Indication: Gastritis
     Dosage: 50 MG, TID
     Route: 048
     Dates: start: 20250423, end: 20250424

REACTIONS (4)
  - Drug-induced liver injury [Recovering/Resolving]
  - Alanine aminotransferase increased [Recovering/Resolving]
  - Aspartate aminotransferase increased [Recovering/Resolving]
  - Product use in unapproved indication [Unknown]

NARRATIVE: CASE EVENT DATE: 20250423
